FAERS Safety Report 15310922 (Version 1)
Quarter: 2018Q3

REPORT INFORMATION
  Report Type: Spontaneous
  Country: US (occurrence: US)
  Receive Date: 20180814
  Receipt Date: 20180814
  Transmission Date: 20181010
  Serious: No
  Sender: FDA-Public Use
  Company Number: None

PATIENT
  Age: 48 Year
  Sex: Female
  Weight: 112.5 kg

DRUGS (8)
  1. GABAPENTIN GENERIC FOR NEURONTIN [Suspect]
     Active Substance: GABAPENTIN
     Indication: BONE PAIN
     Dosage: ?          QUANTITY:1 CAPSULE(S);?
     Route: 048
     Dates: start: 20180508, end: 20180524
  2. DETROL [Concomitant]
     Active Substance: TOLTERODINE TARTRATE
  3. NAPROXEN SODIUM. [Concomitant]
     Active Substance: NAPROXEN SODIUM
  4. PLAQUENIL [Concomitant]
     Active Substance: HYDROXYCHLOROQUINE SULFATE
  5. PAXIL [Concomitant]
     Active Substance: PAROXETINE HYDROCHLORIDE
  6. ADDERALL [Concomitant]
     Active Substance: AMPHETAMINE ASPARTATE\AMPHETAMINE SULFATE\DEXTROAMPHETAMINE SACCHARATE\DEXTROAMPHETAMINE SULFATE
  7. GABAPENTIN GENERIC FOR NEURONTIN [Suspect]
     Active Substance: GABAPENTIN
     Indication: ARTHRALGIA
     Dosage: ?          QUANTITY:1 CAPSULE(S);?
     Route: 048
     Dates: start: 20180508, end: 20180524
  8. LISINOPRIL/HTZ [Concomitant]

REACTIONS (9)
  - Discomfort [None]
  - Mental impairment [None]
  - Restless legs syndrome [None]
  - Anxiety [None]
  - Amnesia [None]
  - Impaired work ability [None]
  - Muscle tightness [None]
  - Disturbance in attention [None]
  - Hypervigilance [None]

NARRATIVE: CASE EVENT DATE: 20180512
